FAERS Safety Report 4714414-3 (Version None)
Quarter: 2005Q3

REPORT INFORMATION
  Report Type: 
  Country: None (occurrence: None)
  Receive Date: 20050712
  Receipt Date: 20050628
  Transmission Date: 20060218
  Serious: Yes (Hospitalization)
  Sender: FDA-Public Use
  Company Number: 8010958

PATIENT
  Age: 35 Year
  Sex: Female
  Weight: 55 kg

DRUGS (8)
  1. KEPPRA [Suspect]
     Indication: AURA
     Dosage: 1.25 G PO
     Route: 048
     Dates: start: 20031101, end: 20050301
  2. KEPPRA [Suspect]
     Indication: EPILEPSY
     Dosage: 1.25 G PO
     Route: 048
     Dates: start: 20031101, end: 20050301
  3. KEPPRA [Suspect]
     Indication: POST PROCEDURAL COMPLICATION
     Dosage: 1.25 G PO
     Route: 048
     Dates: start: 20031101, end: 20050301
  4. KEPPRA [Suspect]
     Indication: AURA
     Dosage: 15 G ONCE PO
     Route: 048
     Dates: start: 20050301, end: 20050301
  5. KEPPRA [Suspect]
     Indication: EPILEPSY
     Dosage: 15 G ONCE PO
     Route: 048
     Dates: start: 20050301, end: 20050301
  6. KEPPRA [Suspect]
     Indication: POST PROCEDURAL COMPLICATION
     Dosage: 15 G ONCE PO
     Route: 048
     Dates: start: 20050301, end: 20050301
  7. LAMOTRIGINE [Concomitant]
  8. CITALOPRAM [Concomitant]

REACTIONS (3)
  - DEPRESSION [None]
  - PSYCHOTIC DISORDER [None]
  - SUICIDE ATTEMPT [None]
